FAERS Safety Report 22349157 (Version 1)
Quarter: 2023Q2

REPORT INFORMATION
  Report Type: Spontaneous
  Country: HR (occurrence: HR)
  Receive Date: 20230522
  Receipt Date: 20230522
  Transmission Date: 20230722
  Serious: Yes (Other)
  Sender: FDA-Public Use
  Company Number: HR-BAYER-2023A069496

PATIENT
  Age: 73 Year
  Sex: Male

DRUGS (12)
  1. RIVAROXABAN [Suspect]
     Active Substance: RIVAROXABAN
     Indication: Atrial fibrillation
     Dosage: 15 MG
     Route: 048
  2. RIVAROXABAN [Suspect]
     Active Substance: RIVAROXABAN
     Indication: Peripheral arterial occlusive disease
     Route: 048
  3. WARFARIN [Concomitant]
     Active Substance: WARFARIN
     Dosage: 3 MG
  4. BISOPROLOL [Concomitant]
     Active Substance: BISOPROLOL
     Dosage: 5 MG
  5. PERINDOPRIL [Concomitant]
     Active Substance: PERINDOPRIL
     Dosage: 5 MG
  6. INDAPAMIDE [Concomitant]
     Active Substance: INDAPAMIDE
     Dosage: 1.25 MG
  7. AMLODIPINE [Concomitant]
     Active Substance: AMLODIPINE BESYLATE
     Dosage: 5 MG
  8. ATORVASTATIN [Concomitant]
     Active Substance: ATORVASTATIN
     Dosage: 20 MG
  9. ATORVASTATIN [Concomitant]
     Active Substance: ATORVASTATIN
     Dosage: 40 MG
     Dates: start: 202211
  10. ATORVASTATIN [Concomitant]
     Active Substance: ATORVASTATIN
     Dosage: 80 MG
  11. METFORMIN [Concomitant]
     Active Substance: METFORMIN HYDROCHLORIDE
     Dosage: 850 MG, BID
  12. EMPAGLIFLOZIN [Concomitant]
     Active Substance: EMPAGLIFLOZIN
     Dosage: 5 MG, BID

REACTIONS (2)
  - Arrhythmia [Not Recovered/Not Resolved]
  - Intermittent claudication [Not Recovered/Not Resolved]

NARRATIVE: CASE EVENT DATE: 20230301
